FAERS Safety Report 15853151 (Version 1)
Quarter: 2019Q1

REPORT INFORMATION
  Report Type: Spontaneous
  Country: US (occurrence: US)
  Receive Date: 20190119
  Receipt Date: 20190119
  Transmission Date: 20190417
  Serious: Yes (Disabling)
  Sender: FDA-Public Use
  Company Number: None

PATIENT
  Age: 44 Year
  Sex: Female
  Weight: 107.55 kg

DRUGS (3)
  1. HYDROCODONE ACETAMINOPHEN GENERIC NORCO [Suspect]
     Active Substance: ACETAMINOPHEN\HYDROCODONE
     Indication: SPINAL OSTEOARTHRITIS
     Dosage: ?          QUANTITY:1 TABLET(S);?
     Route: 048
     Dates: start: 20170810
  2. HYDROCODONE ACETAMINOPHEN GENERIC NORCO [Suspect]
     Active Substance: ACETAMINOPHEN\HYDROCODONE
     Indication: FIBROMYALGIA
     Dosage: ?          QUANTITY:1 TABLET(S);?
     Route: 048
     Dates: start: 20170810
  3. HYDROCODONE ACETAMINOPHEN GENERIC NORCO [Suspect]
     Active Substance: ACETAMINOPHEN\HYDROCODONE
     Indication: PAIN
     Dosage: ?          QUANTITY:1 TABLET(S);?
     Route: 048
     Dates: start: 20170810

REACTIONS (3)
  - Chest pain [None]
  - Palpitations [None]
  - Drug ineffective [None]

NARRATIVE: CASE EVENT DATE: 20181222
